FAERS Safety Report 21830159 (Version 1)
Quarter: 2023Q1

REPORT INFORMATION
  Report Type: Spontaneous
  Country: US (occurrence: None)
  Receive Date: 20230105
  Receipt Date: 20230105
  Transmission Date: 20230417
  Serious: Yes (Hospitalization)
  Sender: FDA-Public Use
  Company Number: None

PATIENT
  Age: 71 Year
  Sex: Male

DRUGS (12)
  1. AMBRISENTAN [Suspect]
     Active Substance: AMBRISENTAN
     Indication: Pulmonary arterial hypertension
     Dosage: 10MG QD ORAL
     Route: 048
     Dates: start: 20210603
  2. TADALAFIL [Concomitant]
     Active Substance: TADALAFIL
  3. METOLAZONE [Concomitant]
     Active Substance: METOLAZONE
  4. POTASSIUM CHLORIDE [Concomitant]
     Active Substance: POTASSIUM CHLORIDE
  5. FERROUS SULFATE [Concomitant]
     Active Substance: FERROUS SULFATE
  6. PANTOPRAZOLE [Concomitant]
     Active Substance: PANTOPRAZOLE
  7. SIMVASTATIN [Concomitant]
     Active Substance: SIMVASTATIN
  8. GABAPENTIN [Concomitant]
     Active Substance: GABAPENTIN
  9. TORSEMIDE [Concomitant]
     Active Substance: TORSEMIDE
  10. WARFARIN [Concomitant]
     Active Substance: WARFARIN
  11. WIXELA INHUB [Concomitant]
     Active Substance: FLUTICASONE PROPIONATE\SALMETEROL XINAFOATE
  12. OXYGEN [Concomitant]

REACTIONS (7)
  - Dyspnoea [None]
  - Laboratory test abnormal [None]
  - Haemoglobin decreased [None]
  - Haematocrit decreased [None]
  - Gastric ulcer [None]
  - Gastric disorder [None]
  - Helicobacter infection [None]

NARRATIVE: CASE EVENT DATE: 20221228
